FAERS Safety Report 22059684 (Version 2)
Quarter: 2023Q2

REPORT INFORMATION
  Report Type: Spontaneous
  Country: JP (occurrence: JP)
  Receive Date: 20230303
  Receipt Date: 20230616
  Transmission Date: 20230721
  Serious: Yes (Other)
  Sender: FDA-Public Use
  Company Number: JP-UCBJ-CD202302400UCBPHAPROD

PATIENT
  Age: 60 Year
  Sex: Female

DRUGS (1)
  1. CIMZIA [Suspect]
     Active Substance: CERTOLIZUMAB PEGOL
     Indication: Rheumatoid arthritis
     Dosage: 200 MILLIGRAM
     Route: 058
     Dates: start: 202208

REACTIONS (1)
  - Lymph node tuberculosis [Recovered/Resolved]

NARRATIVE: CASE EVENT DATE: 20230101
